FAERS Safety Report 4928533-X (Version None)
Quarter: 2006Q1

REPORT INFORMATION
  Report Type: 
  Country: None (occurrence: None)
  Receive Date: 20060223
  Receipt Date: 20060211
  Transmission Date: 20060701
  Serious: Yes (Other)
  Sender: FDA-Public Use
  Company Number: 2006020224

PATIENT
  Age: 5 Year
  Sex: Female
  Weight: 40.8237 kg

DRUGS (1)
  1. COOL MINT LISTERINE (MENTHOL, METHYL SALICYLATE, EUCALYPTOL, THYMOL) [Suspect]
     Indication: ACCIDENTAL EXPOSURE
     Dosage: ALMOST ENTIRE BOTTLE ONCE, ORAL
     Route: 048
     Dates: start: 20060211, end: 20060211

REACTIONS (3)
  - ACCIDENTAL DRUG INTAKE BY CHILD [None]
  - PHARYNGEAL ERYTHEMA [None]
  - PHARYNGEAL OEDEMA [None]
